FAERS Safety Report 11055277 (Version 1)
Quarter: 2015Q2

REPORT INFORMATION
  Report Type: Spontaneous
  Country: US (occurrence: None)
  Receive Date: 20150421
  Receipt Date: 20150421
  Transmission Date: 20150821
  Serious: Yes (Disabling, Other)
  Sender: FDA-Public Use
  Company Number: None

PATIENT
  Age: 60 Year
  Sex: Female
  Weight: 76.2 kg

DRUGS (17)
  1. ALTACE [Concomitant]
     Active Substance: RAMIPRIL
  2. LODINE [Suspect]
     Active Substance: ETODOLAC
     Indication: OSTEOARTHRITIS
     Dosage: 1 PILL 2X DAILY BY MOUTH
     Route: 048
     Dates: start: 20150313, end: 20150412
  3. TRAVATAN Z [Concomitant]
     Active Substance: TRAVOPROST
  4. SALINE MIST [Concomitant]
     Active Substance: SODIUM CHLORIDE
  5. VITAMIN A [Concomitant]
     Active Substance: VITAMIN A
  6. ATORVASTATIN [Concomitant]
     Active Substance: ATORVASTATIN
  7. TRIAMCINOLONE ACETONIDE. [Concomitant]
     Active Substance: TRIAMCINOLONE ACETONIDE
  8. MELATONIN [Concomitant]
     Active Substance: MELATONIN
  9. VITAMIN B COMPLEX [Concomitant]
     Active Substance: CYANOCOBALAMIN\DEXPANTHENOL\NIACINAMIDE\PYRIDOXINE HYDROCHLORIDE\RIBOFLAVIN 5^-PHOSPHATE SODIUM\THIAMINE HYDROCHLORIDE\VITAMIN B COMPLEX
  10. ABILIFY [Concomitant]
     Active Substance: ARIPIPRAZOLE
  11. AMMONIUM LACTATE. [Concomitant]
     Active Substance: AMMONIUM LACTATE
  12. ASPIRIN. [Concomitant]
     Active Substance: ASPIRIN
  13. HERBAL TEAS [Concomitant]
     Active Substance: HERBALS
  14. TIZANIDINE (TIZANIDINE) [Concomitant]
     Active Substance: TIZANIDINE
  15. SYSTANE (HYPROMELLOSE 2910 (4000 MPA.S)) [Concomitant]
     Active Substance: HYPROMELLOSE 2910 (4000 MPA.S)
  16. PROPANOLOL [Concomitant]
     Active Substance: PROPRANOLOL HYDROCHLORIDE
  17. OMEGA 3 [Concomitant]
     Active Substance: OMEGA-3 FATTY ACIDS

REACTIONS (9)
  - Nasal congestion [None]
  - Swelling face [None]
  - Local swelling [None]
  - Swelling [None]
  - Weight increased [None]
  - Eyelid oedema [None]
  - Flatulence [None]
  - Lip swelling [None]
  - Gastric haemorrhage [None]

NARRATIVE: CASE EVENT DATE: 20150406
